FAERS Safety Report 20305358 (Version 1)
Quarter: 2022Q1

REPORT INFORMATION
  Report Type: Spontaneous
  Country: PR (occurrence: PR)
  Receive Date: 20220106
  Receipt Date: 20220106
  Transmission Date: 20220423
  Serious: Yes (Hospitalization, Other)
  Sender: FDA-Public Use
  Company Number: PR-UNITED THERAPEUTICS-UNT-2021-026997

PATIENT
  Age: 69 Year
  Sex: Female

DRUGS (1)
  1. ORENITRAM [Suspect]
     Active Substance: TREPROSTINIL
     Indication: Product used for unknown indication
     Dosage: UNK
     Route: 048
     Dates: end: 20211228

REACTIONS (2)
  - Device related infection [Unknown]
  - Product distribution issue [Unknown]

NARRATIVE: CASE EVENT DATE: 20211227
